FAERS Safety Report 4477601-8 (Version None)
Quarter: 2004Q4

REPORT INFORMATION
  Report Type: 
  Country: None (occurrence: None)
  Receive Date: 20041013
  Receipt Date: 20040929
  Transmission Date: 20050328
  Serious: Yes (Hospitalization)
  Sender: FDA-Public Use
  Company Number: JP_040904599

PATIENT
  Age: 63 Year
  Sex: Male
  Weight: 52 kg

DRUGS (6)
  1. ZYPREXA [Suspect]
     Indication: SCHIZOPHRENIA
     Dosage: 5 MG DAY
     Route: 048
     Dates: start: 20040401, end: 20040917
  2. RISPERDAL [Concomitant]
  3. HYDANTOL D [Concomitant]
  4. AMINOPHYLLIN [Concomitant]
  5. NITRAZEPAM [Concomitant]
  6. TASMOLIN           (BIPERIDEN) [Concomitant]

REACTIONS (1)
  - PANCYTOPENIA [None]
